FAERS Safety Report 9709785 (Version 2)
Quarter: 2013Q4

REPORT INFORMATION
  Report Type: Report from Study
  Country: DE (occurrence: DE)
  Receive Date: 20131126
  Receipt Date: 20131126
  Transmission Date: 20140711
  Serious: Yes (Hospitalization)
  Sender: FDA-Public Use
  Company Number: DE-BRISTOL-MYERS SQUIBB COMPANY-15652373

PATIENT
  Age: 89 Year
  Sex: Female

DRUGS (3)
  1. APIXABAN [Suspect]
     Indication: THROMBOSIS PROPHYLAXIS
     Dosage: DRUG INTERRUPTED 08FEB2011.RESTARTED ON 29MAR2011
     Route: 048
     Dates: start: 20081117
  2. METOPROLOL [Concomitant]
     Dates: start: 20080811
  3. RAMIPRIL [Concomitant]
     Dates: start: 20080619

REACTIONS (2)
  - Anaemia [Not Recovered/Not Resolved]
  - Hypertensive crisis [Not Recovered/Not Resolved]
